FAERS Safety Report 8000339-7 (Version None)
Quarter: 2011Q4

REPORT INFORMATION
  Report Type: 
  Country: None (occurrence: None)
  Receive Date: 20111222
  Receipt Date: 20111215
  Transmission Date: 20120403
  Serious: Yes (Hospitalization)
  Sender: FDA-Public Use
  Company Number: US-ASTELLAS-2011US008505

PATIENT
  Age: 89 Year
  Sex: Male
  Weight: 68 kg

DRUGS (1)
  1. TARCEVA [Suspect]
     Indication: NON-SMALL CELL LUNG CANCER
     Dosage: 150 MG, UID/QD
     Route: 048
     Dates: start: 20111101

REACTIONS (4)
  - DIARRHOEA [None]
  - LOSS OF CONSCIOUSNESS [None]
  - GASTROINTESTINAL INFLAMMATION [None]
  - CHRONIC OBSTRUCTIVE PULMONARY DISEASE [None]
